FAERS Safety Report 14854487 (Version 1)
Quarter: 2018Q2

REPORT INFORMATION
  Report Type: Report from Study
  Country: CA (occurrence: CA)
  Receive Date: 20180507
  Receipt Date: 20180507
  Transmission Date: 20180711
  Serious: Yes (Other)
  Sender: FDA-Public Use
  Company Number: CA-GILEAD-2018-0336599

PATIENT
  Age: 51 Year
  Sex: Female

DRUGS (2)
  1. SOFOSBUVIR W/VELPATASVIR [Suspect]
     Active Substance: SOFOSBUVIR\VELPATASVIR
     Indication: CHRONIC HEPATITIS C
     Dosage: 1 DF (400/100 MG), UNK
     Route: 048
     Dates: start: 20180414, end: 20180414
  2. SOFOSBUVIR W/VELPATASVIR [Suspect]
     Active Substance: SOFOSBUVIR\VELPATASVIR
     Dosage: 1 DF (400/100 MG), UNK
     Route: 048
     Dates: start: 20180416

REACTIONS (2)
  - Helminthic infection [Unknown]
  - Vomiting [Unknown]

NARRATIVE: CASE EVENT DATE: 20180414
